FAERS Safety Report 16863991 (Version 2)
Quarter: 2024Q3

REPORT INFORMATION
  Report Type: Spontaneous
  Country: US (occurrence: US)
  Receive Date: 20190927
  Receipt Date: 20240805
  Transmission Date: 20241017
  Serious: No
  Sender: VIIV
  Company Number: US-VIIV HEALTHCARE LIMITED-00416794

PATIENT
  Sex: Male

DRUGS (1)
  1. TRIUMEQ [Suspect]
     Active Substance: ABACAVIR SULFATE\DOLUTEGRAVIR SODIUM\LAMIVUDINE
     Indication: Product used for unknown indication
     Dosage: 1 MG, QD
     Route: 048

REACTIONS (1)
  - Product dose omission issue [Not Recovered/Not Resolved]
